FAERS Safety Report 8340923-4 (Version None)
Quarter: 2012Q2

REPORT INFORMATION
  Report Type: 
  Country: None (occurrence: None)
  Receive Date: 20120507
  Receipt Date: 20100927
  Transmission Date: 20120825
  Serious: Yes (Life-Threatening)
  Sender: FDA-Public Use
  Company Number: FR-ROCHE-729970

PATIENT
  Sex: Female

DRUGS (4)
  1. TAXOTERE [Suspect]
     Indication: BREAST NEOPLASM
     Route: 065
  2. HERCEPTIN [Suspect]
     Indication: BREAST NEOPLASM
     Route: 065
  3. AVASTIN [Suspect]
     Indication: BREAST NEOPLASM
     Route: 065
  4. CARBOPLATIN [Suspect]
     Indication: BREAST NEOPLASM
     Route: 065

REACTIONS (2)
  - SEPTIC SHOCK [None]
  - BONE MARROW FAILURE [None]
